FAERS Safety Report 6083701-1 (Version None)
Quarter: 2009Q1

REPORT INFORMATION
  Report Type: 
  Country: None (occurrence: None)
  Receive Date: 20090218
  Receipt Date: 20090218
  Transmission Date: 20090719
  Serious: No
  Sender: FDA-Public Use
  Company Number: None

PATIENT
  Age: 5 Year
  Sex: Male
  Weight: 20 kg

DRUGS (1)
  1. LAMOTRIGINE [Suspect]
     Indication: CARBOHYDRATE METABOLISM DISORDER
     Dosage: 100 MG BID ORAL
     Route: 048
     Dates: start: 20061101, end: 20070401

REACTIONS (4)
  - ARTHROPATHY [None]
  - ATAXIA [None]
  - FALL [None]
  - PRODUCT QUALITY ISSUE [None]
